FAERS Safety Report 21112814 (Version 1)
Quarter: 2022Q3

REPORT INFORMATION
  Report Type: Spontaneous
  Country: US (occurrence: None)
  Receive Date: 20220720
  Receipt Date: 20220720
  Transmission Date: 20221027
  Serious: Yes (Death, Life-Threatening, Hospitalization)
  Sender: FDA-Public Use
  Company Number: None

PATIENT
  Age: 61 Year
  Sex: Female

DRUGS (31)
  1. CAPZASIN HP ARTHRITIS PAIN RELIEF [Suspect]
     Active Substance: CAPSAICIN
     Indication: Peripheral coldness
     Route: 061
     Dates: start: 20191114, end: 20191114
  2. NOVOLIN R [Concomitant]
     Active Substance: INSULIN HUMAN
  3. Piperacilin Tazo [Concomitant]
  4. PHENYLEPHRINE HCL [Concomitant]
     Active Substance: PHENYLEPHRINE HYDROCHLORIDE
  5. Atorvastin Calcium [Concomitant]
  6. ALPRAZOLAM [Concomitant]
     Active Substance: ALPRAZOLAM
  7. Abueterol [Concomitant]
  8. ATIVAN [Concomitant]
     Active Substance: LORAZEPAM
  9. Eliqus [Concomitant]
  10. MUCINEX [Concomitant]
     Active Substance: GUAIFENESIN
  11. NYSTATIN [Concomitant]
     Active Substance: NYSTATIN
  12. TRELEGY ELLIPTA [Concomitant]
     Active Substance: FLUTICASONE FUROATE\UMECLIDINIUM BROMIDE\VILANTEROL TRIFENATATE
  13. VITAMIN K [Concomitant]
     Active Substance: PHYTONADIONE
  14. Zorco [Concomitant]
  15. XANAX [Concomitant]
     Active Substance: ALPRAZOLAM
  16. FERROUS SULFATE [Concomitant]
     Active Substance: FERROUS SULFATE
  17. PANTOPRAZOLE SODIUM [Concomitant]
     Active Substance: PANTOPRAZOLE SODIUM
  18. ZOFRAN [Concomitant]
     Active Substance: ONDANSETRON HYDROCHLORIDE
  19. POTASSIUM CHLORIDE [Concomitant]
     Active Substance: POTASSIUM CHLORIDE
  20. ULTRAM [Concomitant]
     Active Substance: TRAMADOL HYDROCHLORIDE
  21. UNSPECIFIED INGREDIENT [Concomitant]
     Active Substance: UNSPECIFIED INGREDIENT
  22. Dextromethorphan Guaifenesin [Concomitant]
  23. ZOSYN [Concomitant]
     Active Substance: PIPERACILLIN SODIUM\TAZOBACTAM SODIUM
  24. NORVASC [Concomitant]
     Active Substance: AMLODIPINE BESYLATE
  25. SYNTHROID [Concomitant]
     Active Substance: LEVOTHYROXINE SODIUM
  26. SIMVASTATIN [Concomitant]
     Active Substance: SIMVASTATIN
  27. PROBIOTICS NOS [Concomitant]
     Active Substance: PROBIOTICS NOS
  28. AFRIN [Concomitant]
     Active Substance: OXYMETAZOLINE
  29. TYLENOL [Concomitant]
     Active Substance: ACETAMINOPHEN
  30. PREDNISONE [Concomitant]
     Active Substance: PREDNISONE
  31. FOLIC ACID [Concomitant]
     Active Substance: FOLIC ACID

REACTIONS (1)
  - Adverse drug reaction [None]

NARRATIVE: CASE EVENT DATE: 20191030
